FAERS Safety Report 7308596-7 (Version None)
Quarter: 2011Q1

REPORT INFORMATION
  Report Type: 
  Country: None (occurrence: None)
  Receive Date: 20110223
  Receipt Date: 20110221
  Transmission Date: 20110831
  Serious: Yes (Other)
  Sender: FDA-Public Use
  Company Number: US-PFIZER INC-2011037909

PATIENT
  Sex: Male
  Weight: 90.703 kg

DRUGS (7)
  1. TERAZOSIN [Concomitant]
     Dosage: 5 MG, 1X/DAY
     Route: 048
  2. CALCIUM [Concomitant]
     Dosage: UNK
  3. RAMIPRIL [Concomitant]
     Dosage: 10 MG, 1X/DAY
     Route: 048
  4. LIPITOR [Suspect]
     Indication: MEMORY IMPAIRMENT
     Dosage: 20 MG, 1X/DAY
     Route: 048
     Dates: start: 20070101
  5. LIPITOR [Suspect]
     Dosage: 10 MG, 1X/DAY
     Dates: start: 20100101, end: 20100101
  6. INSULIN [Concomitant]
     Dosage: UNK
  7. LIPITOR [Suspect]
     Dosage: 10 MG, 1X/DAY
     Dates: start: 20110101

REACTIONS (2)
  - RASH MACULO-PAPULAR [None]
  - EXPIRED DRUG ADMINISTERED [None]
